FAERS Safety Report 5757165-9 (Version None)
Quarter: 2008Q2

REPORT INFORMATION
  Report Type: 
  Country: None (occurrence: None)
  Receive Date: 20080529
  Receipt Date: 20080421
  Transmission Date: 20081010
  Serious: Yes (Hospitalization)
  Sender: FDA-Public Use
  Company Number: LSTIFF04212008

PATIENT
  Sex: Female

DRUGS (1)
  1. CLEARSKIN PURIFYING GEL CLEANSER-NORMAL TO OILY SKIN [Suspect]

REACTIONS (2)
  - PRURITUS [None]
  - SWELLING [None]
